FAERS Safety Report 8911866 (Version 1)
Quarter: 2012Q4

REPORT INFORMATION
  Report Type: 
  Country: US (occurrence: US)
  Receive Date: 20121116
  Receipt Date: 20121116
  Transmission Date: 20130627
  Serious: No
  Sender: FDA-Public Use
  Company Number: US-GLAXOSMITHKLINE-A0967652A

PATIENT
  Age: 82 Year
  Sex: Female

DRUGS (11)
  1. EVOCLIN [Suspect]
     Indication: ALOPECIA
     Dosage: 1APP Twice per day
     Route: 061
     Dates: start: 20120224, end: 20120226
  2. AZATHIOPRINE [Concomitant]
  3. PRAVASTATIN SODIUM [Concomitant]
  4. DILTIAZEM [Concomitant]
  5. OMEPRAZOLE [Concomitant]
  6. INSULIN [Concomitant]
  7. GABAPENTIN [Concomitant]
  8. JANUVIA [Concomitant]
  9. PRILOSEC [Concomitant]
  10. FENOFIBRATE [Concomitant]
  11. OXYGEN [Concomitant]

REACTIONS (6)
  - Thermal burn [Unknown]
  - Pruritus [Unknown]
  - Headache [Unknown]
  - Thermal burn [Unknown]
  - Hyperaesthesia [Unknown]
  - Drug ineffective [Unknown]
